FAERS Safety Report 16871754 (Version 10)
Quarter: 2020Q1

REPORT INFORMATION
  Report Type: Report from Study
  Country: US (occurrence: US)
  Receive Date: 20191001
  Receipt Date: 20200212
  Transmission Date: 20200409
  Serious: Yes (Other)
  Sender: FDA-Public Use
  Company Number: US-SHIRE-US201931949

PATIENT
  Age: 39 Year
  Sex: Female

DRUGS (1)
  1. PARATHYROID HORMONE [Suspect]
     Active Substance: PARATHYROID HORMONE
     Indication: HYPOPARATHYROIDISM
     Dosage: 100 MICROGRAM, 1X/DAY:QD
     Route: 050
     Dates: start: 20151027

REACTIONS (13)
  - Feeling abnormal [Not Recovered/Not Resolved]
  - Insomnia [Not Recovered/Not Resolved]
  - Incorrect dose administered by device [Unknown]
  - Needle issue [Unknown]
  - Nephrolithiasis [Not Recovered/Not Resolved]
  - Muscle spasms [Not Recovered/Not Resolved]
  - Stress [Unknown]
  - Seizure [Recovered/Resolved]
  - Product availability issue [Unknown]
  - Recalled product [Unknown]
  - Migraine [Not Recovered/Not Resolved]
  - Blood calcium decreased [Not Recovered/Not Resolved]
  - Blood calcium abnormal [Not Recovered/Not Resolved]

NARRATIVE: CASE EVENT DATE: 20190926
